FAERS Safety Report 4951413-0 (Version None)
Quarter: 2006Q1

REPORT INFORMATION
  Report Type: 
  Country: None (occurrence: None)
  Receive Date: 20060317
  Receipt Date: 20060301
  Transmission Date: 20060701
  Serious: Yes (Hospitalization)
  Sender: FDA-Public Use
  Company Number: US200602001117

PATIENT
  Age: 59 Year
  Sex: Female
  Weight: 52.2 kg

DRUGS (7)
  1. FORTEO [Suspect]
     Dates: start: 20050101
  2. FORTEO PEN (150MCG/ML) (FORTEO PEN 150MCG/ML (3ML) PEN, DISPOSABLE [Concomitant]
  3. FOSAMAX /ITA/(ALENDRONATE SODIUM) [Concomitant]
  4. COMTREX (CHLORPHENAMINE MALEATE, DEXTROMETHORPHAN HYDROBROMIDE, PARACE [Concomitant]
  5. COMBIVENT /GFR/(IPRATROPIUM BROMIDE, SALBUTAMOL SULFATE) [Concomitant]
  6. ADVAIR DISKUS 100/50 [Concomitant]
  7. MIACALCIN [Concomitant]

REACTIONS (2)
  - BONE OPERATION [None]
  - FRACTURE NONUNION [None]
